FAERS Safety Report 6358115-7 (Version None)
Quarter: 2009Q3

REPORT INFORMATION
  Report Type: 
  Country: None (occurrence: None)
  Receive Date: 20090916
  Receipt Date: 20090909
  Transmission Date: 20100115
  Serious: Yes (Hospitalization)
  Sender: FDA-Public Use
  Company Number: FR-AVENTIS-200913346FR

PATIENT
  Age: 34 Year
  Sex: Female

DRUGS (5)
  1. CLOMID [Suspect]
     Indication: OVULATION INDUCTION
     Route: 048
     Dates: start: 20090401
  2. ORELOX [Suspect]
     Indication: ANGINA PECTORIS
     Route: 048
     Dates: start: 20090523, end: 20090527
  3. CLAMOXYL                           /00249601/ [Suspect]
     Indication: ANGINA PECTORIS
     Route: 048
     Dates: start: 20090604, end: 20090609
  4. PHYSIOGINE [Suspect]
     Indication: DRUG USE FOR UNKNOWN INDICATION
     Route: 048
  5. DUPHASTON [Suspect]
     Indication: DRUG USE FOR UNKNOWN INDICATION
     Route: 048

REACTIONS (4)
  - ARTHRALGIA [None]
  - PRURITUS [None]
  - RASH ERYTHEMATOUS [None]
  - SYSTEMIC LUPUS ERYTHEMATOSUS [None]
